FAERS Safety Report 18946166 (Version 1)
Quarter: 2021Q1

REPORT INFORMATION
  Report Type: Spontaneous
  Country: US (occurrence: US)
  Receive Date: 20210226
  Receipt Date: 20210226
  Transmission Date: 20210420
  Serious: Yes (Hospitalization, Other)
  Sender: FDA-Public Use
  Company Number: US-MYLANLABS-2021M1011806

PATIENT
  Age: 34 Year
  Sex: Female

DRUGS (1)
  1. TRIAMCINOLONE [Suspect]
     Active Substance: TRIAMCINOLONE
     Indication: ASCITES
     Dosage: 500 MILLIGRAM
     Route: 033

REACTIONS (3)
  - Adrenal insufficiency [Unknown]
  - Hyperglycaemia [Recovered/Resolved]
  - Off label use [Unknown]
